FAERS Safety Report 17301745 (Version 3)
Quarter: 2020Q2

REPORT INFORMATION
  Report Type: Report from Study
  Country: EG (occurrence: EG)
  Receive Date: 20200122
  Receipt Date: 20200429
  Transmission Date: 20200713
  Serious: Yes (Other)
  Sender: FDA-Public Use
  Company Number: NVSC2020EG013702

PATIENT
  Age: 4 Year
  Sex: Female

DRUGS (4)
  1. VIDROP [Concomitant]
     Indication: PRODUCT USED FOR UNKNOWN INDICATION
     Dosage: 1 ML, QD
     Route: 065
     Dates: start: 20200103
  2. HYDROFERRIN [Concomitant]
     Indication: PRODUCT USED FOR UNKNOWN INDICATION
     Dosage: 1 ML, QD
     Route: 065
     Dates: start: 20200103
  3. OMNITROPE [Suspect]
     Active Substance: SOMATROPIN
     Indication: HYPERSENSITIVITY
     Dosage: 0.4 MG, QD
     Route: 058
     Dates: start: 20200103
  4. ZINC. [Concomitant]
     Active Substance: ZINC
     Indication: PRODUCT USED FOR UNKNOWN INDICATION
     Dosage: 5 ML, QD
     Route: 065
     Dates: start: 20200103

REACTIONS (5)
  - Wrong technique in product usage process [Not Recovered/Not Resolved]
  - Device issue [Unknown]
  - Product use in unapproved indication [Not Recovered/Not Resolved]
  - Vomiting [Not Recovered/Not Resolved]
  - Abdominal pain upper [Not Recovered/Not Resolved]

NARRATIVE: CASE EVENT DATE: 20200103
